FAERS Safety Report 4795485-5 (Version None)
Quarter: 2005Q4

REPORT INFORMATION
  Report Type: 
  Country: None (occurrence: None)
  Receive Date: 20051012
  Receipt Date: 20050927
  Transmission Date: 20060501
  Serious: Yes (Hospitalization)
  Sender: FDA-Public Use
  Company Number: DE-JNJFOC-20050904465

PATIENT
  Sex: Female
  Weight: 52 kg

DRUGS (4)
  1. REMINYL [Suspect]
     Indication: DEMENTIA ALZHEIMER'S TYPE
     Route: 048
     Dates: start: 20050623, end: 20050823
  2. ASPIRIN [Suspect]
     Route: 048
  3. VERAPAMIL [Concomitant]
     Route: 048
  4. GLUCOBAY [Concomitant]
     Indication: DIABETES MELLITUS
     Route: 048

REACTIONS (2)
  - GASTRIC ULCER HELICOBACTER [None]
  - HYPOCHROMIC ANAEMIA [None]
